FAERS Safety Report 19924477 (Version 1)
Quarter: 2021Q4

REPORT INFORMATION
  Report Type: Spontaneous
  Country: DE (occurrence: DE)
  Receive Date: 20211006
  Receipt Date: 20211006
  Transmission Date: 20220303
  Serious: Yes (Other)
  Sender: FDA-Public Use
  Company Number: DE-LUPIN PHARMACEUTICALS INC.-2021-18780

PATIENT
  Age: 39 Year
  Sex: Male

DRUGS (5)
  1. FINGOLIMOD [Suspect]
     Active Substance: FINGOLIMOD
     Indication: Secondary progressive multiple sclerosis
     Dosage: UNK
     Route: 065
  2. METHYLPREDNISOLONE [Suspect]
     Active Substance: METHYLPREDNISOLONE
     Indication: Secondary progressive multiple sclerosis
     Dosage: 1000 MILLIGRAM, QD (FOR 3-5 DAYS HIGH DOSE, EVERY 3-MONTH)
     Route: 042
  3. GLATIRAMER ACETATE [Suspect]
     Active Substance: GLATIRAMER ACETATE
     Indication: Secondary progressive multiple sclerosis
     Dosage: UNK
     Route: 065
  4. TERIFLUNOMIDE [Suspect]
     Active Substance: TERIFLUNOMIDE
     Indication: Secondary progressive multiple sclerosis
     Dosage: UNK
     Route: 065
  5. TRETINOIN [Concomitant]
     Active Substance: TRETINOIN
     Indication: Secondary progressive multiple sclerosis
     Dosage: A 30-DAY INDUCTION PHASE WITH 45 MG/M2 FOLLOWED BY 3 CYCLES OF CONSOLIDATION (DAILY MEDICATION DURIN
     Route: 048

REACTIONS (1)
  - Treatment failure [Unknown]
